FAERS Safety Report 5167197-X (Version None)
Quarter: 2006Q4

REPORT INFORMATION
  Report Type: 
  Country: None (occurrence: None)
  Receive Date: 20061130
  Receipt Date: 20061121
  Transmission Date: 20070319
  Serious: Yes (Other)
  Sender: FDA-Public Use
  Company Number: HQWYE440227NOV06

PATIENT
  Age: 39 Year
  Sex: Male

DRUGS (3)
  1. TYGACIL [Suspect]
     Indication: CATHETER RELATED INFECTION
     Dosage: 50 MG 2X PER 1 DAY; INTRAVENOUS
     Route: 042
     Dates: start: 20061104, end: 20061116
  2. TYGACIL [Suspect]
     Indication: SEPSIS
     Dosage: 50 MG 2X PER 1 DAY; INTRAVENOUS
     Route: 042
     Dates: start: 20061104, end: 20061116
  3. HEPARIN [Suspect]
     Indication: PROPHYLAXIS

REACTIONS (11)
  - ELECTROLYTE IMBALANCE [None]
  - GASTRIC ULCER HAEMORRHAGE [None]
  - GRAND MAL CONVULSION [None]
  - HAEMATEMESIS [None]
  - HYPOGLYCAEMIA [None]
  - LUNG INFECTION PSEUDOMONAL [None]
  - METABOLIC ENCEPHALOPATHY [None]
  - PNEUMONIA [None]
  - RECTAL HAEMORRHAGE [None]
  - THROMBOCYTOPENIA [None]
  - VOMITING [None]
